FAERS Safety Report 9759752 (Version 1)
Quarter: 2013Q4

REPORT INFORMATION
  Report Type: Spontaneous
  Country: US (occurrence: US)
  Receive Date: 20131216
  Receipt Date: 20131216
  Transmission Date: 20140711
  Serious: Yes (Hospitalization)
  Sender: FDA-Public Use
  Company Number: US-GILEAD-2010-0029109

PATIENT
  Age: 77 Year
  Sex: Male
  Weight: 92.53 kg

DRUGS (16)
  1. LETAIRIS [Suspect]
     Indication: PULMONARY ARTERIAL HYPERTENSION
     Route: 048
  2. FUROSEMIDE [Concomitant]
  3. COZAAR [Concomitant]
  4. METOPROLOL [Concomitant]
  5. NORVASC [Concomitant]
  6. HUMALOG INSULIN [Concomitant]
  7. HUMULIN 70/30 [Concomitant]
  8. LANTUS INSULIN [Concomitant]
  9. GLIPIZIDE [Concomitant]
  10. CENTRUM SILVER [Concomitant]
  11. ZOCOR [Concomitant]
  12. FLONASE [Concomitant]
  13. ADVAIR HFA [Concomitant]
  14. SPIRIVA [Concomitant]
  15. PREDNISOLONE [Concomitant]
  16. MIRAPEX [Concomitant]

REACTIONS (1)
  - Dyspnoea [Not Recovered/Not Resolved]
